FAERS Safety Report 6786894-3 (Version None)
Quarter: 2010Q2

REPORT INFORMATION
  Report Type: 
  Country: None (occurrence: None)
  Receive Date: 20100621
  Receipt Date: 20100608
  Transmission Date: 20101027
  Serious: Yes (Hospitalization)
  Sender: FDA-Public Use
  Company Number: 2010-2000

PATIENT
  Age: 22 Year
  Sex: Male

DRUGS (4)
  1. DYSPORT [Suspect]
     Indication: DIPLOPIA
     Dosage: 10 UNITS (10 UNITS, SINGLE CYCLE)
     Dates: start: 20100429, end: 20100429
  2. DYSPORT [Suspect]
     Indication: OFF LABEL USE
     Dosage: 10 UNITS (10 UNITS, SINGLE CYCLE)
     Dates: start: 20100429, end: 20100429
  3. BOTULINUM TOXIN TYPE A [Suspect]
  4. TEMOZOLOMIDE [Concomitant]

REACTIONS (3)
  - ABASIA [None]
  - DYSPHAGIA [None]
  - RESPIRATORY DISORDER [None]
